FAERS Safety Report 15801244 (Version 2)
Quarter: 2019Q2

REPORT INFORMATION
  Report Type: Spontaneous
  Country: BR (occurrence: BR)
  Receive Date: 20190109
  Receipt Date: 20190610
  Transmission Date: 20190711
  Serious: Yes (Hospitalization)
  Sender: FDA-Public Use
  Company Number: BR-ABBVIE-18P-020-2602938-00

PATIENT
  Age: 86 Year
  Sex: Female

DRUGS (5)
  1. CREON [Suspect]
     Active Substance: PANCRELIPASE AMYLASE\PANCRELIPASE LIPASE\PANCRELIPASE PROTEASE
     Indication: PANCREATITIS
     Dosage: MORNING, BEFORE MEAL
     Route: 048
     Dates: start: 20181201, end: 20190102
  2. GEROVITAL [Concomitant]
     Indication: MALNUTRITION
     Dosage: START DATE: ONE AND A HALF YEAR AGO
     Route: 048
     Dates: start: 2017
  3. CLOPIDOGREL BISULFATE. [Concomitant]
     Active Substance: CLOPIDOGREL BISULFATE
     Indication: PRODUCT USED FOR UNKNOWN INDICATION
     Dosage: EVERY NIGHT
  4. DIGOXIN. [Concomitant]
     Active Substance: DIGOXIN
     Indication: PRODUCT USED FOR UNKNOWN INDICATION
     Dosage: DOSAGE: 0.5 TABLET, ONCE IN EVERY OTHER DAY, AT NIGHT
  5. FOLIC ACID. [Concomitant]
     Active Substance: FOLIC ACID
     Indication: MEMORY IMPAIRMENT
     Dosage: UNIT DOSE: 1 TABLET, 10 A.M.
     Route: 048
     Dates: start: 201802

REACTIONS (20)
  - Decreased appetite [Unknown]
  - Dizziness [Not Recovered/Not Resolved]
  - Abdominal pain [Unknown]
  - Syncope [Unknown]
  - Constipation [Not Recovered/Not Resolved]
  - Diarrhoea [Unknown]
  - Pain [Unknown]
  - Mental impairment [Unknown]
  - Abdominal pain [Not Recovered/Not Resolved]
  - Blood glucose increased [Unknown]
  - Unevaluable event [Unknown]
  - Arthralgia [Unknown]
  - Cardiac disorder [Unknown]
  - Asthenia [Unknown]
  - Weight decreased [Unknown]
  - Anaemia [Unknown]
  - Abdominal pain [Recovering/Resolving]
  - Product prescribing error [Unknown]
  - Condition aggravated [Unknown]
  - Flatulence [Not Recovered/Not Resolved]
